FAERS Safety Report 7193088-9 (Version None)
Quarter: 2010Q4

REPORT INFORMATION
  Report Type: 
  Country: None (occurrence: None)
  Receive Date: 20101221
  Receipt Date: 20101221
  Transmission Date: 20110411
  Serious: Yes (Hospitalization, Disabling)
  Sender: FDA-Public Use
  Company Number: None

PATIENT
  Age: 44 Year
  Sex: Female
  Weight: 61.9614 kg

DRUGS (1)
  1. DEPO-PROVERA [Suspect]
     Indication: DYSMENORRHOEA
     Dosage: 150 MG EVERY 12 WEEKS IM
     Route: 030
     Dates: start: 20080215, end: 20101115

REACTIONS (1)
  - EMBOLIA CUTIS MEDICAMENTOSA [None]
